FAERS Safety Report 12608464 (Version 7)
Quarter: 2017Q2

REPORT INFORMATION
  Report Type: Spontaneous
  Country: JP (occurrence: JP)
  Receive Date: 20160729
  Receipt Date: 20170622
  Transmission Date: 20170830
  Serious: Yes (Life-Threatening, Other)
  Sender: FDA-Public Use
  Company Number: JP-ASTRAZENECA-2016SE81484

PATIENT
  Age: 60 Year
  Sex: Male

DRUGS (8)
  1. SILECE [Concomitant]
     Active Substance: FLUNITRAZEPAM
     Dosage: FLUNITRAZEPAM 2 MG 1 TABLET
     Dates: start: 20160722
  2. SILECE [Concomitant]
     Active Substance: FLUNITRAZEPAM
     Dates: end: 20160722
  3. SEROQUEL [Suspect]
     Active Substance: QUETIAPINE FUMARATE
     Indication: DEPRESSION
     Dosage: 25 MG-25 MG-100 MG, THRICE DAILY, IN THE MORNING, AT NIGHT AND AT BEDTIME
     Route: 048
     Dates: end: 20160722
  4. SOLANAX [Concomitant]
     Active Substance: ALPRAZOLAM
     Route: 048
  5. DEPAS [Concomitant]
     Active Substance: ETIZOLAM
     Route: 048
  6. SEROQUEL [Suspect]
     Active Substance: QUETIAPINE FUMARATE
     Indication: DEPRESSION
     Dosage: 50 MG-100 MG
     Route: 048
     Dates: start: 2006
  7. SEROQUEL [Suspect]
     Active Substance: QUETIAPINE FUMARATE
     Indication: DEPRESSION
     Dosage: 50 MG-100 MG, TWICE DAILY, AT NIGHT AND BEDTIME
     Route: 048
     Dates: start: 2006
  8. SERENACE [Concomitant]
     Active Substance: HALOPERIDOL
     Route: 048

REACTIONS (18)
  - Suicide attempt [Unknown]
  - General physical health deterioration [Unknown]
  - Diabetes mellitus [Unknown]
  - Hepatic steatosis [Not Recovered/Not Resolved]
  - Obesity [Unknown]
  - Thinking abnormal [Unknown]
  - Weight increased [Not Recovered/Not Resolved]
  - Face oedema [Not Recovered/Not Resolved]
  - High density lipoprotein increased [Not Recovered/Not Resolved]
  - Low density lipoprotein increased [Not Recovered/Not Resolved]
  - Blood glucose abnormal [Unknown]
  - Alanine aminotransferase increased [Not Recovered/Not Resolved]
  - Gamma-glutamyltransferase increased [Not Recovered/Not Resolved]
  - Off label use [Unknown]
  - Blood triglycerides increased [Not Recovered/Not Resolved]
  - Depression [Not Recovered/Not Resolved]
  - Memory impairment [Unknown]
  - Aspartate aminotransferase increased [Not Recovered/Not Resolved]

NARRATIVE: CASE EVENT DATE: 2006
